FAERS Safety Report 23646603 (Version 2)
Quarter: 2025Q1

REPORT INFORMATION
  Report Type: Spontaneous
  Country: TW (occurrence: TW)
  Receive Date: 20240319
  Receipt Date: 20250106
  Transmission Date: 20250409
  Serious: Yes (Hospitalization, Other)
  Sender: AMGEN
  Company Number: TW-PFIZER INC-202400061558

PATIENT
  Sex: Male

DRUGS (5)
  1. ETANERCEPT [Suspect]
     Active Substance: ETANERCEPT
     Indication: Impetigo herpetiformis
     Dosage: 50 MILLIGRAM, 2 TIMES/WK (50 MG TWICE WEEKLY, SINCE GA 30TH WEEK)
     Route: 064
  2. CYCLOSPORINE [Suspect]
     Active Substance: CYCLOSPORINE
     Indication: Impetigo herpetiformis
     Route: 065
  3. ADALIMUMAB [Suspect]
     Active Substance: ADALIMUMAB
     Indication: Impetigo herpetiformis
     Route: 064
  4. ADALIMUMAB [Suspect]
     Active Substance: ADALIMUMAB
     Route: 064
  5. ADALIMUMAB [Suspect]
     Active Substance: ADALIMUMAB
     Route: 064

REACTIONS (2)
  - Premature baby [Unknown]
  - Maternal exposure during pregnancy [Unknown]
